FAERS Safety Report 9535041 (Version 2)
Quarter: 2013Q4

REPORT INFORMATION
  Report Type: Spontaneous
  Country: IT (occurrence: IT)
  Receive Date: 20130918
  Receipt Date: 20131125
  Transmission Date: 20140711
  Serious: Yes (Other)
  Sender: FDA-Public Use
  Company Number: IT-PFIZER INC-2013269291

PATIENT
  Age: 36 Year
  Sex: Male

DRUGS (5)
  1. LYRICA [Suspect]
     Dosage: 75 MG, DAILY
     Route: 048
  2. CARBAMAZEPINE [Suspect]
     Dosage: UNK
     Route: 048
  3. BROMAZEPAM [Suspect]
     Dosage: 10 DROPS DAILY
     Route: 048
  4. RISPERDAL [Suspect]
     Dosage: 2 MG, DAILY
     Route: 048
  5. FLUVOXAMINE [Suspect]
     Dosage: 50 MG, DAILY
     Route: 048

REACTIONS (6)
  - Ataxia [Unknown]
  - Diplopia [Unknown]
  - Dysarthria [Unknown]
  - Sluggishness [Unknown]
  - Vertigo [Unknown]
  - Vomiting [Unknown]
